FAERS Safety Report 8528599 (Version 3)
Quarter: 2012Q4

REPORT INFORMATION
  Report Type: Report from Study
  Country: JP (occurrence: JP)
  Receive Date: 20120424
  Receipt Date: 20121205
  Transmission Date: 20130627
  Serious: Yes (Hospitalization, Other)
  Sender: FDA-Public Use
  Company Number: JP-ABBOTT-11P-087-0860242-00

PATIENT
  Age: 36 Year
  Sex: Male
  Weight: 48.8 kg

DRUGS (9)
  1. HUMIRA 40 MG/ 0.8 ML PRE-FILLED SYRINGE [Suspect]
     Indication: CROHN^S DISEASE
     Route: 058
     Dates: start: 20101203, end: 20101203
  2. HUMIRA 40 MG/ 0.8 ML PRE-FILLED SYRINGE [Suspect]
     Dates: start: 20101217, end: 20101217
  3. HUMIRA 40 MG/ 0.8 ML PRE-FILLED SYRINGE [Suspect]
     Dates: start: 20101231, end: 20110603
  4. HUMIRA 40 MG/ 0.8 ML PRE-FILLED SYRINGE [Suspect]
     Dates: start: 20110701
  5. MESALAZINE [Concomitant]
     Indication: CROHN^S DISEASE
     Dosage: 4000mg daily
     Route: 048
  6. PARENTERAL NUTRITION [Concomitant]
     Indication: CROHN^S DISEASE
     Dosage: 600 ml daily
     Route: 048
     Dates: end: 20110614
  7. BUPRENORPHINE HYDROCHLORIDE [Concomitant]
     Indication: CROHN^S DISEASE
     Dosage: 0.4 mg daily
     Route: 054
     Dates: end: 20110614
  8. BUPRENORPHINE HYDROCHLORIDE [Concomitant]
     Dates: end: 20110614
  9. ENTECAVIR HYDRATE [Concomitant]
     Indication: PRODUCT USED FOR UNKNOWN INDICATION
     Dosage: 0.5 mg daily
     Route: 048

REACTIONS (5)
  - Condition aggravated [Unknown]
  - Viral infection [Recovered/Resolved]
  - Crohn^s disease [Recovering/Resolving]
  - Blood albumin decreased [Unknown]
  - C-reactive protein increased [Unknown]
